FAERS Safety Report 20251105 (Version 1)
Quarter: 2021Q4

REPORT INFORMATION
  Report Type: Spontaneous
  Country: US (occurrence: US)
  Receive Date: 20211229
  Receipt Date: 20211229
  Transmission Date: 20220304
  Serious: No
  Sender: FDA-Public Use
  Company Number: US-CLOVIS ONCOLOGY-CLO-2021-000478

PATIENT
  Sex: Female

DRUGS (3)
  1. RUBRACA [Suspect]
     Active Substance: RUCAPARIB CAMSYLATE
     Indication: Ovarian cancer
     Dosage: 400 MILLIGRAM, BID
     Route: 048
     Dates: start: 20210302
  2. RUBRACA [Suspect]
     Active Substance: RUCAPARIB CAMSYLATE
     Dosage: 400 MILLIGRAM, BID
     Route: 048
     Dates: start: 20210201, end: 20210825
  3. RUBRACA [Suspect]
     Active Substance: RUCAPARIB CAMSYLATE
     Dosage: 400 MILLIGRAM, BID
     Route: 048
     Dates: start: 20210922

REACTIONS (9)
  - Gait disturbance [Unknown]
  - Back pain [Unknown]
  - Sciatica [Not Recovered/Not Resolved]
  - Renal function test abnormal [Recovering/Resolving]
  - Influenza [Unknown]
  - Fatigue [Unknown]
  - Vomiting [Unknown]
  - Nausea [Not Recovered/Not Resolved]
  - Nausea [Unknown]

NARRATIVE: CASE EVENT DATE: 20210101
